FAERS Safety Report 8702097 (Version 5)
Quarter: 2013Q3

REPORT INFORMATION
  Report Type: Spontaneous
  Country: JP (occurrence: JP)
  Receive Date: 20120803
  Receipt Date: 20130813
  Transmission Date: 20140515
  Serious: Yes (Death)
  Sender: FDA-Public Use
  Company Number: JP-SANOFI-AVENTIS-2012SA053676

PATIENT
  Age: 59 Year
  Sex: Female
  Weight: 87 kg

DRUGS (1)
  1. CLEXANE [Suspect]
     Indication: THROMBOSIS PROPHYLAXIS
     Route: 058
     Dates: start: 20120703, end: 20120706

REACTIONS (9)
  - Heparin-induced thrombocytopenia [Fatal]
  - Haemorrhagic cerebral infarction [Fatal]
  - Hypoaesthesia [Fatal]
  - Eyelid ptosis [Fatal]
  - Hemiparesis [Fatal]
  - Respiratory depression [Fatal]
  - Pupils unequal [Fatal]
  - Superior sagittal sinus thrombosis [Fatal]
  - Brain herniation [Fatal]
